FAERS Safety Report 10920318 (Version 1)
Quarter: 2015Q1

REPORT INFORMATION
  Report Type: Spontaneous
  Country: US (occurrence: None)
  Receive Date: 20150313
  Receipt Date: 20150313
  Transmission Date: 20150721
  Serious: Yes (Hospitalization, Other)
  Sender: FDA-Public Use
  Company Number: None

PATIENT
  Age: 68 Year
  Sex: Male

DRUGS (4)
  1. ASPIRIN. [Concomitant]
     Active Substance: ASPIRIN
  2. NEXIUM [Concomitant]
     Active Substance: ESOMEPRAZOLE MAGNESIUM
  3. LOSARTIN [Concomitant]
     Active Substance: LOSARTAN
  4. LOTENSIN [Suspect]
     Active Substance: BENAZEPRIL HYDROCHLORIDE
     Indication: HYPERTENSION
     Dosage: 1/2 BY MOUTH
     Route: 048
     Dates: start: 20150119

REACTIONS (7)
  - Abdominal discomfort [None]
  - Hypertension [None]
  - Drug ineffective [None]
  - Tremor [None]
  - Product substitution issue [None]
  - Product quality issue [None]
  - Diarrhoea [None]

NARRATIVE: CASE EVENT DATE: 20150119
